FAERS Safety Report 18165624 (Version 1)
Quarter: 2020Q3

REPORT INFORMATION
  Report Type: Spontaneous
  Country: CA (occurrence: CA)
  Receive Date: 20200818
  Receipt Date: 20200818
  Transmission Date: 20201103
  Serious: Yes (Death)
  Sender: FDA-Public Use
  Company Number: CA-ASTRAZENECA-2020SF03689

PATIENT
  Age: 90 Year
  Sex: Female

DRUGS (9)
  1. HEPARIN CALCIUM [Suspect]
     Active Substance: HEPARIN CALCIUM
     Indication: INFARCTION
     Dosage: 600 UNITS
     Route: 040
  2. RAMIPRIL. [Concomitant]
     Active Substance: RAMIPRIL
  3. LAX?A?DAY [Concomitant]
     Active Substance: POLYETHYLENE GLYCOL 3350
  4. SERTRALINE [Concomitant]
     Active Substance: SERTRALINE HYDROCHLORIDE
  5. TRAZODONE [Concomitant]
     Active Substance: TRAZODONE HYDROCHLORIDE
  6. VITAMIN D + CALCIUM [Concomitant]
     Active Substance: CALCIUM\VITAMIN D
  7. BRILINTA [Suspect]
     Active Substance: TICAGRELOR
     Indication: INFARCTION
     Route: 048
  8. TYLENOL [Concomitant]
     Active Substance: ACETAMINOPHEN
  9. RISEDRONATE (MANUFACTURER UNKNOWN) [Concomitant]
     Active Substance: RISEDRONATE SODIUM

REACTIONS (6)
  - Fall [Fatal]
  - Haemorrhage intracranial [Fatal]
  - Infarction [Fatal]
  - Scan brain [Fatal]
  - Angina pectoris [Fatal]
  - Troponin increased [Fatal]
